FAERS Safety Report 13947026 (Version 2)
Quarter: 2017Q4

REPORT INFORMATION
  Report Type: Spontaneous
  Country: BR (occurrence: BR)
  Receive Date: 20170907
  Receipt Date: 20171219
  Transmission Date: 20180320
  Serious: No
  Sender: FDA-Public Use
  Company Number: BR-GLAXOSMITHKLINE-BR2017GSK137227

PATIENT
  Sex: Male

DRUGS (7)
  1. AEROLIN [Suspect]
     Active Substance: ALBUTEROL
     Indication: RHINITIS
     Dosage: UNK
  2. AEROLIN [Suspect]
     Active Substance: ALBUTEROL
     Indication: ASTHMATIC CRISIS
  3. BUSONID [Suspect]
     Active Substance: BUDESONIDE
     Indication: ASTHMATIC CRISIS
     Dosage: UNK
  4. PREDSIM [Suspect]
     Active Substance: PREDNISOLONE
     Indication: PRODUCT USED FOR UNKNOWN INDICATION
     Dosage: UNK
  5. AEROLIN [Suspect]
     Active Substance: ALBUTEROL
     Indication: SINUSITIS
  6. ALLEGRA [Suspect]
     Active Substance: FEXOFENADINE HYDROCHLORIDE
     Indication: PRODUCT USED FOR UNKNOWN INDICATION
     Dosage: UNK
  7. SYMBICORT [Suspect]
     Active Substance: BUDESONIDE\FORMOTEROL FUMARATE DIHYDRATE
     Indication: PRODUCT USED FOR UNKNOWN INDICATION
     Dosage: UNK

REACTIONS (1)
  - Drug ineffective [Not Recovered/Not Resolved]
